FAERS Safety Report 5754865-1 (Version None)
Quarter: 2008Q2

REPORT INFORMATION
  Report Type: 
  Country: None (occurrence: None)
  Receive Date: 20080527
  Receipt Date: 20080507
  Transmission Date: 20081010
  Serious: Yes (Death)
  Sender: FDA-Public Use
  Company Number: 2008AL004000

PATIENT
  Age: 61 Year
  Sex: Male

DRUGS (9)
  1. DIGOXIN [Suspect]
     Indication: ARRHYTHMIA
     Dosage: 0.25MG, DAILY PO
     Route: 048
     Dates: start: 20040101
  2. DIGOXIN [Suspect]
     Indication: HYPERTENSION
     Dosage: 0.25MG, DAILY PO
     Route: 048
     Dates: start: 20040101
  3. PERPHENAZINE [Concomitant]
  4. KLOR-CON [Concomitant]
  5. ZOLOFT [Concomitant]
  6. FAMOTIDINE [Concomitant]
  7. ZOCOR [Concomitant]
  8. LORAZEPAM [Concomitant]
  9. LASIX [Concomitant]

REACTIONS (4)
  - INCONTINENCE [None]
  - INSOMNIA [None]
  - NERVOUSNESS [None]
  - VOMITING [None]
